FAERS Safety Report 4526272-0 (Version None)
Quarter: 2004Q4

REPORT INFORMATION
  Report Type: 
  Country: None (occurrence: None)
  Receive Date: 20041126
  Receipt Date: 20041112
  Transmission Date: 20050328
  Serious: Yes (Hospitalization)
  Sender: FDA-Public Use
  Company Number: 2004UW23417

PATIENT
  Age: 63 Year
  Sex: Female

DRUGS (1)
  1. CRESTOR [Suspect]

REACTIONS (3)
  - BLOOD CREATINE PHOSPHOKINASE INCREASED [None]
  - HEPATIC PAIN [None]
  - HEPATOTOXICITY [None]
